FAERS Safety Report 14322171 (Version 3)
Quarter: 2018Q1

REPORT INFORMATION
  Report Type: Spontaneous
  Country: DE (occurrence: DE)
  Receive Date: 20171225
  Receipt Date: 20180223
  Transmission Date: 20180509
  Serious: Yes (Other)
  Sender: FDA-Public Use
  Company Number: DE-AUROBINDO-AUR-APL-2017-45627

PATIENT
  Age: 22 Year
  Sex: Male

DRUGS (16)
  1. CLOFAZIMINE [Suspect]
     Active Substance: CLOFAZIMINE
     Indication: PULMONARY TUBERCULOSIS
     Dosage: 100 MG, DAILY
     Route: 048
     Dates: start: 20171012
  2. DEKRISTOL [Concomitant]
     Active Substance: CHOLECALCIFEROL
     Indication: PROPHYLAXIS
     Dosage: UNK
     Route: 065
  3. PROTIONAMIDE [Suspect]
     Active Substance: PROTIONAMIDE
     Indication: PULMONARY TUBERCULOSIS
     Dosage: 750 MG, DAILY (2X250+1 X250)
     Route: 048
     Dates: start: 20170618, end: 20170723
  4. PZA [Suspect]
     Active Substance: PYRAZINAMIDE
     Indication: PULMONARY TUBERCULOSIS
     Dosage: 1500 MG, DAILY
     Route: 048
     Dates: start: 20170524, end: 20170726
  5. CLOFAZIMINE [Suspect]
     Active Substance: CLOFAZIMINE
     Dosage: 100 MG, DAILY
     Route: 048
     Dates: start: 20170718, end: 20170927
  6. TERIZIDONE [Suspect]
     Active Substance: TERIZIDONE
     Indication: PULMONARY TUBERCULOSIS
     Dosage: 750 MG, DAILY, 2X250+1 X250
     Route: 048
     Dates: start: 20170619
  7. MOXIFLOXACIN. [Suspect]
     Active Substance: MOXIFLOXACIN
     Indication: PRODUCT USED FOR UNKNOWN INDICATION
     Dosage: 400 MG, DAILY
     Route: 042
     Dates: start: 20170928, end: 20171015
  8. DELTYBA [Suspect]
     Active Substance: DELAMANID
     Indication: PULMONARY TUBERCULOSIS
     Dosage: 200 MG, DAILY
     Route: 048
     Dates: start: 20170712, end: 20170927
  9. DEKRISTOL [Concomitant]
     Active Substance: CHOLECALCIFEROL
     Indication: CONSTIPATION
  10. VITAMIN B6 [Concomitant]
     Active Substance: PYRIDOXINE HYDROCHLORIDE
     Indication: PROPHYLAXIS
     Dosage: UNK
     Route: 065
  11. MOXIFLOXACIN. [Suspect]
     Active Substance: MOXIFLOXACIN
     Dosage: 400 MG, DAILY
     Route: 048
     Dates: start: 20171016
  12. DELTYBA [Suspect]
     Active Substance: DELAMANID
     Dosage: 200 UNK, UNK
     Route: 048
     Dates: start: 20171012
  13. ETHAMBUTOL [Suspect]
     Active Substance: ETHAMBUTOL HYDROCHLORIDE
     Dosage: 1000 MG, UNK
     Route: 048
     Dates: start: 20170706, end: 20170710
  14. LINEZOLID. [Suspect]
     Active Substance: LINEZOLID
     Indication: PULMONARY TUBERCULOSIS
     Dosage: 600 MG, DAILY
     Route: 048
     Dates: start: 20170620
  15. MOXIFLOXACIN. [Suspect]
     Active Substance: MOXIFLOXACIN
     Indication: PULMONARY TUBERCULOSIS
     Dosage: 400 MG, DAILY
     Route: 048
     Dates: start: 20170603, end: 20170928
  16. ETHAMBUTOL [Suspect]
     Active Substance: ETHAMBUTOL HYDROCHLORIDE
     Indication: PULMONARY TUBERCULOSIS
     Dosage: 1000 MG, DAILY
     Route: 048
     Dates: start: 20171014

REACTIONS (2)
  - Helicobacter gastritis [Recovered/Resolved]
  - Bicytopenia [Recovered/Resolved with Sequelae]

NARRATIVE: CASE EVENT DATE: 20170916
